FAERS Safety Report 9548589 (Version 1)
Quarter: 2013Q3

REPORT INFORMATION
  Report Type: Report from Study
  Country: US (occurrence: US)
  Receive Date: 20130924
  Receipt Date: 20130924
  Transmission Date: 20140515
  Serious: Yes (Other)
  Sender: FDA-Public Use
  Company Number: US-SANOFI-AVENTIS-2013SA093183

PATIENT
  Sex: Female

DRUGS (1)
  1. AUBAGIO [Suspect]
     Route: 048
     Dates: start: 20130822

REACTIONS (5)
  - Transient ischaemic attack [Unknown]
  - Pain [Unknown]
  - Eye irritation [Unknown]
  - Constipation [Recovering/Resolving]
  - Nausea [Unknown]
